FAERS Safety Report 15979509 (Version 5)
Quarter: 2020Q2

REPORT INFORMATION
  Report Type: Spontaneous
  Country: US (occurrence: US)
  Receive Date: 20190219
  Receipt Date: 20200612
  Transmission Date: 20200713
  Serious: Yes (Other)
  Sender: FDA-Public Use
  Company Number: US-PFIZER INC-2019066062

PATIENT
  Age: 69 Year
  Sex: Female
  Weight: 84 kg

DRUGS (9)
  1. RELAFEN [Concomitant]
     Active Substance: NABUMETONE
     Dosage: UNK
  2. WELLBUTRIN SR [Concomitant]
     Active Substance: BUPROPION HYDROCHLORIDE
     Dosage: 150 MG, 2X/DAY
     Route: 048
  3. FLEXERIL [Concomitant]
     Active Substance: CYCLOBENZAPRINE HYDROCHLORIDE
     Dosage: UNK
  4. CHOLECALCIFEROL [Concomitant]
     Active Substance: CHOLECALCIFEROL
     Dosage: UNK
  5. PRAVACHOL [Concomitant]
     Active Substance: PRAVASTATIN SODIUM
     Dosage: 20 MG, 1X/DAY (EVERY EVENING)
     Route: 048
  6. VOLTAREN [Concomitant]
     Active Substance: DICLOFENAC SODIUM
     Dosage: UNK
  7. LITHOBID [Concomitant]
     Active Substance: LITHIUM CARBONATE
     Dosage: 300 MG, 2X/DAY
     Route: 048
  8. XELJANZ [Suspect]
     Active Substance: TOFACITINIB CITRATE
     Indication: RHEUMATOID ARTHRITIS
     Dosage: 5 MG, UNK
  9. PRILOSEC [Concomitant]
     Active Substance: OMEPRAZOLE MAGNESIUM
     Dosage: UNK

REACTIONS (7)
  - Pain [Not Recovered/Not Resolved]
  - Dementia [Unknown]
  - Dyspnoea [Unknown]
  - Malaise [Not Recovered/Not Resolved]
  - Feeling abnormal [Unknown]
  - Product dose omission [Unknown]
  - Arthralgia [Not Recovered/Not Resolved]

NARRATIVE: CASE EVENT DATE: 2018
